FAERS Safety Report 4682766-9 (Version None)
Quarter: 2005Q2

REPORT INFORMATION
  Report Type: 
  Country: None (occurrence: None)
  Receive Date: 20050602
  Receipt Date: 20050421
  Transmission Date: 20051028
  Serious: No
  Sender: FDA-Public Use
  Company Number: USA050496315

PATIENT
  Age: 57 Year
  Sex: Female

DRUGS (5)
  1. CYMBALTA [Suspect]
     Dosage: 30 MG IN THE MORNING
     Dates: start: 20050331
  2. ABILIFY [Concomitant]
  3. LEXAPRO [Concomitant]
  4. LIBRIUM [Concomitant]
  5. WELLBUTRIN [Concomitant]

REACTIONS (4)
  - ABNORMAL DREAMS [None]
  - INSOMNIA [None]
  - MIGRAINE [None]
  - TREMOR [None]
